FAERS Safety Report 18214537 (Version 1)
Quarter: 2020Q3

REPORT INFORMATION
  Report Type: Report from Study
  Country: GB (occurrence: GB)
  Receive Date: 20200831
  Receipt Date: 20200831
  Transmission Date: 20201103
  Serious: Yes (Life-Threatening, Hospitalization, Other)
  Sender: FDA-Public Use
  Company Number: PHHY2019GB192935

PATIENT
  Sex: Male

DRUGS (1)
  1. COSENTYX [Suspect]
     Active Substance: SECUKINUMAB
     Indication: PSORIASIS
     Dosage: 300 MG, QMO
     Route: 058
     Dates: start: 20180108

REACTIONS (10)
  - Hepatic cancer [Unknown]
  - Neoplasm malignant [Unknown]
  - Feeling abnormal [Unknown]
  - Gastric infection [Unknown]
  - Myocardial infarction [Unknown]
  - Liver disorder [Unknown]
  - Lung disorder [Unknown]
  - Psoriasis [Unknown]
  - Renal disorder [Unknown]
  - Malaise [Unknown]
